FAERS Safety Report 9109053 (Version 1)
Quarter: 2013Q1

REPORT INFORMATION
  Report Type: Spontaneous
  Country: GB (occurrence: GB)
  Receive Date: 20130222
  Receipt Date: 20130222
  Transmission Date: 20140127
  Serious: Yes (Other)
  Sender: FDA-Public Use
  Company Number: GB-JNJFOC-20130210458

PATIENT
  Age: 59 Year
  Sex: Female
  Weight: 78.92 kg

DRUGS (6)
  1. PARACETAMOL/CODEINE PHOSPHATE [Suspect]
     Indication: PAIN IN EXTREMITY
     Route: 048
     Dates: start: 20120201
  2. PARACETAMOL/CODEINE PHOSPHATE [Suspect]
     Indication: BACK PAIN
     Route: 048
     Dates: start: 20120201
  3. DIAZEPAM [Concomitant]
     Route: 065
  4. EVOREL CONTI [Concomitant]
     Route: 065
  5. PARACETAMOL [Concomitant]
     Route: 065
  6. SINEMET [Concomitant]
     Route: 065

REACTIONS (2)
  - Dyspnoea [Not Recovered/Not Resolved]
  - Withdrawal syndrome [Not Recovered/Not Resolved]
